FAERS Safety Report 7747551-X (Version None)
Quarter: 2011Q3

REPORT INFORMATION
  Report Type: 
  Country: None (occurrence: None)
  Receive Date: 20110913
  Receipt Date: 20110817
  Transmission Date: 20111222
  Serious: Yes (Death, Other)
  Sender: FDA-Public Use
  Company Number: US-BAXTER-2009BH016119

PATIENT
  Age: 17 Year
  Sex: Male
  Weight: 64 kg

DRUGS (33)
  1. CLARITHROMYCIN [Concomitant]
     Indication: PRODUCT USED FOR UNKNOWN INDICATION
     Route: 065
  2. HEPARIN SODIUM INJECTION [Suspect]
     Indication: PRODUCT USED FOR UNKNOWN INDICATION
     Route: 042
     Dates: start: 20071025, end: 20071026
  3. HEPARIN SODIUM INJECTION [Suspect]
     Route: 042
     Dates: start: 20071024
  4. HEPARIN SODIUM 5,000 UNITS IN DEXTROSE 5% [Suspect]
     Indication: PRODUCT USED FOR UNKNOWN INDICATION
     Route: 041
     Dates: start: 20071022
  5. HEPARIN SODIUM 5,000 UNITS IN DEXTROSE 5% [Suspect]
     Route: 041
     Dates: start: 20071023
  6. ZANTAC [Concomitant]
     Indication: PRODUCT USED FOR UNKNOWN INDICATION
     Route: 042
  7. HEPARIN SODIUM INJECTION [Suspect]
     Indication: DEEP VEIN THROMBOSIS
     Route: 042
     Dates: start: 20071025, end: 20071026
  8. HEPARIN SODIUM INJECTION [Suspect]
     Route: 040
     Dates: start: 20071022, end: 20071022
  9. HEPARIN SODIUM 5,000 UNITS IN DEXTROSE 5% [Suspect]
     Route: 041
     Dates: start: 20071025
  10. ARGATROBAN [Suspect]
     Indication: DEEP VEIN THROMBOSIS
     Route: 041
     Dates: start: 20071029, end: 20071117
  11. HEPARIN SODIUM 5,000 UNITS IN DEXTROSE 5% [Suspect]
     Route: 041
     Dates: start: 20071024
  12. HEPARIN SODIUM [Suspect]
     Indication: PULMONARY EMBOLISM
     Route: 041
     Dates: start: 20071022, end: 20071029
  13. VANCOMYCIN [Concomitant]
     Indication: PRODUCT USED FOR UNKNOWN INDICATION
     Route: 065
  14. ACETAMINOPHEN [Concomitant]
     Indication: PRODUCT USED FOR UNKNOWN INDICATION
     Route: 065
  15. HEPARIN SODIUM INJECTION [Suspect]
     Route: 042
     Dates: start: 20071024
  16. HEPARIN SODIUM INJECTION [Suspect]
     Route: 042
     Dates: start: 20071024
  17. HEPARIN SODIUM INJECTION [Suspect]
     Route: 042
     Dates: start: 20071025
  18. ANCEF [Concomitant]
     Indication: PRODUCT USED FOR UNKNOWN INDICATION
     Route: 065
  19. DOCUSATE SODIUM [Concomitant]
     Indication: PRODUCT USED FOR UNKNOWN INDICATION
     Route: 042
  20. IBUPROFEN [Concomitant]
     Indication: PRODUCT USED FOR UNKNOWN INDICATION
     Route: 048
  21. HEPARIN SODIUM INJECTION [Suspect]
     Route: 042
     Dates: start: 20071025
  22. HEPARIN SODIUM 5,000 UNITS IN DEXTROSE 5% [Suspect]
     Route: 041
     Dates: start: 20071025
  23. ARGATROBAN [Suspect]
     Indication: PULMONARY EMBOLISM
     Route: 041
     Dates: start: 20071029, end: 20071117
  24. ROCEPHIN [Concomitant]
     Indication: PRODUCT USED FOR UNKNOWN INDICATION
     Route: 065
  25. IBUPROFEN [Concomitant]
     Route: 048
  26. HEPARIN SODIUM INJECTION [Suspect]
     Indication: PULMONARY EMBOLISM
     Route: 042
     Dates: start: 20071025, end: 20071026
  27. HEPARIN SODIUM INJECTION [Suspect]
     Route: 040
     Dates: start: 20071022, end: 20071022
  28. HEPARIN SODIUM [Suspect]
     Indication: DEEP VEIN THROMBOSIS
     Route: 041
     Dates: start: 20071022, end: 20071029
  29. ALLEGRA [Concomitant]
     Indication: PRODUCT USED FOR UNKNOWN INDICATION
     Route: 065
  30. HEPARIN SODIUM INJECTION [Suspect]
     Route: 040
     Dates: start: 20071022, end: 20071022
  31. HEPARIN SODIUM INJECTION [Suspect]
     Route: 042
     Dates: start: 20071025
  32. FENTANYL [Concomitant]
     Indication: PRODUCT USED FOR UNKNOWN INDICATION
     Route: 065
  33. HYDROCODONE [Concomitant]
     Indication: PRODUCT USED FOR UNKNOWN INDICATION
     Route: 048

REACTIONS (19)
  - HAEMORRHAGE INTRACRANIAL [None]
  - HEPARIN-INDUCED THROMBOCYTOPENIA [None]
  - DRUG HYPERSENSITIVITY [None]
  - DEEP VEIN THROMBOSIS [None]
  - BRAIN DEATH [None]
  - NAUSEA [None]
  - HAEMODYNAMIC INSTABILITY [None]
  - HYPOTENSION [None]
  - THROMBOSIS [None]
  - CEREBRAL ISCHAEMIA [None]
  - BRAIN HERNIATION [None]
  - VOMITING [None]
  - THROMBOSIS IN DEVICE [None]
  - DEPRESSION [None]
  - INTRACRANIAL PRESSURE INCREASED [None]
  - CEREBROVASCULAR ACCIDENT [None]
  - DRUG INEFFECTIVE [None]
  - ABDOMINAL PAIN [None]
  - OEDEMA [None]
